FAERS Safety Report 5741308-7 (Version None)
Quarter: 2008Q2

REPORT INFORMATION
  Report Type: 
  Country: None (occurrence: None)
  Receive Date: 20080515
  Receipt Date: 20080505
  Transmission Date: 20081010
  Serious: Yes (Other)
  Sender: FDA-Public Use
  Company Number: S08-USA-01664-01

PATIENT
  Age: 85 Year
  Sex: Female

DRUGS (12)
  1. LEXAPRO [Suspect]
     Indication: DEPRESSION
     Dosage: 10 MG QD PO
     Route: 048
     Dates: start: 20060401
  2. PLAVIX [Concomitant]
  3. COREG [Concomitant]
  4. LISINOPRIL WITH HYDROCHLOROTHIAZIDE [Concomitant]
  5. AMIODARONE [Concomitant]
  6. ZETIA [Concomitant]
  7. SULAR [Concomitant]
  8. ISOSORBIDE DINITRATE [Concomitant]
  9. FUROSEMIDE [Concomitant]
  10. ASPIRIN [Concomitant]
  11. WARFARIN SODIUM [Concomitant]
  12. FOSAMAX WITH VITAMIN D [Concomitant]

REACTIONS (6)
  - AMNESIA [None]
  - CONTUSION [None]
  - CONVULSION [None]
  - FALL [None]
  - SOMNOLENCE [None]
  - UNRESPONSIVE TO STIMULI [None]
